FAERS Safety Report 4585331-7 (Version None)
Quarter: 2005Q1

REPORT INFORMATION
  Report Type: 
  Country: None (occurrence: None)
  Receive Date: 20050214
  Receipt Date: 20041018
  Transmission Date: 20050727
  Serious: Yes (Death)
  Sender: FDA-Public Use
  Company Number: 05-105

PATIENT
  Age: 80 Year
  Sex: Male

DRUGS (18)
  1. DEXAMETHASONE [Suspect]
     Indication: MULTIPLE MYELOMA
     Dosage: 40 MG/DAY, ORAL
     Route: 048
     Dates: start: 20020425, end: 20020428
  2. DEXAMETHASONE [Suspect]
     Indication: MYELOMA RECURRENCE
     Dosage: 40 MG/DAY, ORAL
     Route: 048
     Dates: start: 20020425, end: 20020428
  3. GENASENSE [Suspect]
     Indication: MULTIPLE MYELOMA
     Dosage: 7 MG/KG/DAY, INTRAVENOUS
     Route: 042
     Dates: start: 20020422, end: 20020429
  4. GENASENSE [Suspect]
     Indication: MYELOMA RECURRENCE
     Dosage: 7 MG/KG/DAY, INTRAVENOUS
     Route: 042
     Dates: start: 20020422, end: 20020429
  5. PAMIDRONATE DISODIUM [Concomitant]
  6. RANITIDINE [Concomitant]
  7. DIPHENHYDRAMINE HCL [Concomitant]
  8. ACETAMINOPHEN [Concomitant]
  9. CLOTRIMAZOLE [Concomitant]
  10. LEVOTHYROXINE [Concomitant]
  11. HYDROCODONE BITARTRATE AND ACETAMINOPHEN [Concomitant]
  12. ASPIRIN [Concomitant]
  13. SENNA [Concomitant]
  14. PSYLLIUM [Concomitant]
  15. HEPARIN [Concomitant]
  16. EPOETIN ALFA [Concomitant]
  17. MULTI-VITAMIN [Concomitant]
  18. VITAMINS B6, C AND E [Concomitant]

REACTIONS (2)
  - MALIGNANT NEOPLASM PROGRESSION [None]
  - MULTIPLE MYELOMA [None]
